FAERS Safety Report 15181275 (Version 4)
Quarter: 2018Q4

REPORT INFORMATION
  Report Type: Spontaneous
  Country: US (occurrence: US)
  Receive Date: 20180723
  Receipt Date: 20181113
  Transmission Date: 20190204
  Serious: No
  Sender: FDA-Public Use
  Company Number: US-SA-2018SA197916

PATIENT
  Age: 74 Year
  Sex: Female

DRUGS (1)
  1. DUPIXENT [Suspect]
     Active Substance: DUPILUMAB
     Indication: DERMATITIS ATOPIC
     Dosage: 300 MG, QOW
     Route: 058
     Dates: start: 20180328

REACTIONS (4)
  - Drug ineffective [Unknown]
  - Pruritus [Unknown]
  - Rash [Unknown]
  - Gingival pain [Unknown]

NARRATIVE: CASE EVENT DATE: 2018
